FAERS Safety Report 4780147-0 (Version None)
Quarter: 2005Q3

REPORT INFORMATION
  Report Type: 
  Country: None (occurrence: None)
  Receive Date: 20050914
  Receipt Date: 20050706
  Transmission Date: 20060218
  Serious: Yes (Other)
  Sender: FDA-Public Use
  Company Number: 163-20785-05070111

PATIENT

DRUGS (1)
  1. THALOMID [Suspect]
     Indication: LYMPHOCYTIC LEUKAEMIA
     Dosage: 200 MG, QHS, ORAL
     Route: 048
     Dates: start: 20030510

REACTIONS (2)
  - HAEMOGLOBIN DECREASED [None]
  - SYNCOPE [None]
